FAERS Safety Report 21653799 (Version 2)
Quarter: 2023Q1

REPORT INFORMATION
  Report Type: Spontaneous
  Country: FR (occurrence: FR)
  Receive Date: 20221129
  Receipt Date: 20230123
  Transmission Date: 20230418
  Serious: Yes (Death, Other)
  Sender: FDA-Public Use
  Company Number: FR-BIOVITRUM-2022FR13918

PATIENT
  Age: 3 Month
  Sex: Male

DRUGS (1)
  1. NITISINONE [Suspect]
     Active Substance: NITISINONE
     Indication: Tyrosinaemia

REACTIONS (3)
  - Hepatic failure [Fatal]
  - Pulmonary haemorrhage [Fatal]
  - Alpha 1 foetoprotein increased [Unknown]
